FAERS Safety Report 9166009 (Version 2)
Quarter: 2013Q4

REPORT INFORMATION
  Report Type: Spontaneous
  Country: FR (occurrence: FR)
  Receive Date: 20130315
  Receipt Date: 20131018
  Transmission Date: 20140711
  Serious: Yes (Hospitalization)
  Sender: FDA-Public Use
  Company Number: FR-VIIV HEALTHCARE LIMITED-B0872477A

PATIENT
  Age: 63 Year
  Sex: Male

DRUGS (7)
  1. KIVEXA [Suspect]
     Indication: HIV INFECTION
     Route: 048
     Dates: start: 20130121, end: 20130207
  2. EPIVIR [Concomitant]
     Indication: HIV INFECTION
     Route: 065
     Dates: start: 200910, end: 20130121
  3. AUGMENTIN [Concomitant]
     Indication: BRONCHITIS
     Route: 065
     Dates: start: 20130125
  4. REYATAZ [Concomitant]
     Indication: HIV INFECTION
     Route: 065
     Dates: start: 2006
  5. NORVIR [Concomitant]
     Indication: HIV INFECTION
     Route: 065
     Dates: start: 2006
  6. VIDEX [Concomitant]
     Indication: HIV INFECTION
     Route: 065
     Dates: start: 200910, end: 20130121
  7. KARDEGIC [Concomitant]
     Route: 065
     Dates: start: 20101123

REACTIONS (6)
  - Confusional state [Recovered/Resolved]
  - Pyrexia [Recovered/Resolved]
  - General physical health deterioration [Unknown]
  - Gait disturbance [Unknown]
  - Balance disorder [Unknown]
  - Inflammation [Unknown]
